FAERS Safety Report 10463275 (Version 1)
Quarter: 2014Q3

REPORT INFORMATION
  Report Type: Spontaneous
  Country: US (occurrence: US)
  Receive Date: 20140919
  Receipt Date: 20140919
  Transmission Date: 20150326
  Serious: No
  Sender: FDA-Public Use
  Company Number: US-BIOGENIDEC-2014BI093969

PATIENT
  Age: 24 Year
  Sex: Female

DRUGS (2)
  1. TECFIDERA [Suspect]
     Active Substance: DIMETHYL FUMARATE
     Indication: RELAPSING-REMITTING MULTIPLE SCLEROSIS
     Route: 048
     Dates: start: 20140904
  2. TECFIDERA [Suspect]
     Active Substance: DIMETHYL FUMARATE
     Indication: RELAPSING-REMITTING MULTIPLE SCLEROSIS
     Route: 048
     Dates: start: 20140903

REACTIONS (8)
  - Pneumonia [Unknown]
  - Pyrexia [Unknown]
  - Flushing [Unknown]
  - Tremor [Unknown]
  - General symptom [Not Recovered/Not Resolved]
  - Nervousness [Unknown]
  - Nasopharyngitis [Unknown]
  - Anger [Unknown]

NARRATIVE: CASE EVENT DATE: 20140903
